FAERS Safety Report 10607922 (Version 1)
Quarter: 2014Q4

REPORT INFORMATION
  Report Type: Spontaneous
  Country: US (occurrence: US)
  Receive Date: 20141125
  Receipt Date: 20141125
  Transmission Date: 20150529
  Serious: No
  Sender: FDA-Public Use
  Company Number: US-BRISTOL-MYERS SQUIBB COMPANY-21397963

PATIENT
  Age: 57 Year
  Sex: Male
  Weight: 109.8 kg

DRUGS (3)
  1. FORXIGA [Suspect]
     Active Substance: DAPAGLIFLOZIN
  2. INSULIN [Suspect]
     Active Substance: INSULIN NOS
     Dosage: 1 DF= 76J
  3. METFORMIN HCL [Suspect]
     Active Substance: METFORMIN HYDROCHLORIDE
     Dosage: SLOWED RELEASE

REACTIONS (2)
  - Pruritus genital [Recovered/Resolved]
  - Genital erythema [Recovered/Resolved]
